FAERS Safety Report 26192213 (Version 1)
Quarter: 2025Q4

REPORT INFORMATION
  Report Type: Spontaneous
  Country: US (occurrence: US)
  Receive Date: 20251223
  Receipt Date: 20251223
  Transmission Date: 20260118
  Serious: Yes (Hospitalization)
  Sender: TEVA
  Company Number: US-TEVA-VS-3404783

PATIENT
  Age: 78 Year
  Sex: Male

DRUGS (3)
  1. ETOPOSIDE [Suspect]
     Active Substance: ETOPOSIDE
     Indication: Yolk sac tumour site unspecified
     Route: 065
  2. DACTINOMYCIN [Suspect]
     Active Substance: DACTINOMYCIN
     Indication: Yolk sac tumour site unspecified
     Route: 065
  3. CYCLOPHOSPHAMIDE [Suspect]
     Active Substance: CYCLOPHOSPHAMIDE
     Indication: Yolk sac tumour site unspecified
     Route: 065

REACTIONS (7)
  - Mucosal inflammation [Recovering/Resolving]
  - Escherichia infection [Recovering/Resolving]
  - Thrombocytopenia [Recovering/Resolving]
  - Neutropenia [Recovering/Resolving]
  - Streptococcal infection [Recovering/Resolving]
  - Blood creatinine increased [Recovering/Resolving]
  - Febrile neutropenia [Recovering/Resolving]
